FAERS Safety Report 25844269 (Version 2)
Quarter: 2025Q4

REPORT INFORMATION
  Report Type: Spontaneous
  Country: CA (occurrence: CA)
  Receive Date: 20250925
  Receipt Date: 20251028
  Transmission Date: 20260118
  Serious: Yes (Hospitalization, Other)
  Sender: SPECGX
  Company Number: CA-SPECGX-T202501588

PATIENT
  Age: 21 Year
  Sex: Female

DRUGS (8)
  1. METHADOSE [Suspect]
     Active Substance: METHADONE HYDROCHLORIDE
     Indication: Product used for unknown indication
     Dosage: UNK
     Route: 065
  2. OXYBATE [Suspect]
     Active Substance: OXYBATE
     Indication: Product used for unknown indication
     Dosage: UNK
     Route: 065
  3. RENFLEXIS [Suspect]
     Active Substance: INFLIXIMAB-ABDA
     Indication: Crohn^s disease
     Dosage: 500 MILLIGRAM,1 EVERY 6 WEEKS
     Route: 065
     Dates: start: 20200319
  4. RENFLEXIS [Suspect]
     Active Substance: INFLIXIMAB-ABDA
     Dosage: 500 MILLIGRAM, 1 EVERY 6 WEEKS
     Route: 065
  5. RENFLEXIS [Suspect]
     Active Substance: INFLIXIMAB-ABDA
     Dosage: 500 MILLIGRAM, 1 EVERY 6 WEEKS
     Route: 065
  6. RENFLEXIS [Suspect]
     Active Substance: INFLIXIMAB-ABDA
     Dosage: 500 MILLIGRAM, 1 EVERY 6 WEEKS
     Route: 065
  7. RENFLEXIS [Suspect]
     Active Substance: INFLIXIMAB-ABDA
     Dosage: 500 MILLIGRAM, 1 EVERY 6 WEEKS
     Route: 065
  8. RENFLEXIS [Suspect]
     Active Substance: INFLIXIMAB-ABDA
     Indication: Crohn^s disease
     Dosage: 500 MILLIGRAM, 1 EVERY 6 WEEKS (POWDER FOR SOLUTION)()
     Route: 042
     Dates: start: 20200319

REACTIONS (9)
  - Syphilis [Recovered/Resolved]
  - Caesarean section [Unknown]
  - Overdose [Unknown]
  - Sexually transmitted disease [Recovering/Resolving]
  - Snoring [Unknown]
  - Hypersomnia [Unknown]
  - Sedation complication [Unknown]
  - Off label use [Unknown]
  - Maternal exposure during pregnancy [Unknown]

NARRATIVE: CASE EVENT DATE: 20250101
